FAERS Safety Report 25942840 (Version 1)
Quarter: 2025Q4

REPORT INFORMATION
  Report Type: Spontaneous
  Country: US (occurrence: None)
  Receive Date: 20251021
  Receipt Date: 20251021
  Transmission Date: 20260118
  Serious: No
  Sender: UCB
  Company Number: US-UCBSA-2025057991

PATIENT

DRUGS (2)
  1. RYSTIGGO [Suspect]
     Active Substance: ROZANOLIXIZUMAB-NOLI
     Indication: Osteoporosis
     Dosage: 560 MILLIGRAM, WEEKLY (QW)
  2. RYSTIGGO [Suspect]
     Active Substance: ROZANOLIXIZUMAB-NOLI
     Indication: Off label use

REACTIONS (3)
  - Musculoskeletal stiffness [Unknown]
  - Product dose omission issue [Unknown]
  - Off label use [Unknown]
